FAERS Safety Report 6114450-9 (Version None)
Quarter: 2009Q1

REPORT INFORMATION
  Report Type: 
  Country: None (occurrence: None)
  Receive Date: 20090313
  Receipt Date: 20090305
  Transmission Date: 20090719
  Serious: Yes (Hospitalization)
  Sender: FDA-Public Use
  Company Number: PHHY2009JP04246

PATIENT
  Sex: Male

DRUGS (6)
  1. DIOVAN [Suspect]
     Indication: HYPERTENSION
     Route: 048
  2. DEPAKENE [Suspect]
     Route: 048
  3. MYONAL [Concomitant]
     Route: 048
  4. MEDICON (DEXTROMETHORPHAN HYDROBROMIDE) [Concomitant]
     Route: 048
  5. MUCOSOLVAN [Concomitant]
     Route: 048
  6. STARSIS [Concomitant]
     Route: 048

REACTIONS (2)
  - BLOOD CREATINE PHOSPHOKINASE INCREASED [None]
  - CONVULSION [None]
